FAERS Safety Report 7812492-6 (Version None)
Quarter: 2011Q4

REPORT INFORMATION
  Report Type: 
  Country: None (occurrence: None)
  Receive Date: 20111013
  Receipt Date: 20111005
  Transmission Date: 20120403
  Serious: Yes (Death, Hospitalization)
  Sender: FDA-Public Use
  Company Number: DE-CELGENEUS-062-21880-09081095

PATIENT
  Age: 50 Year
  Sex: Male

DRUGS (6)
  1. NOVALGIN [Concomitant]
     Indication: PAIN
     Route: 065
  2. MORPHINE [Concomitant]
     Indication: PAIN
     Route: 065
  3. DURAGESIC-100 [Concomitant]
     Indication: PAIN
     Route: 065
  4. REVLIMID [Suspect]
     Indication: MULTIPLE MYELOMA
     Dosage: 15 MILLIGRAM
     Route: 048
     Dates: start: 20091201, end: 20100501
  5. DEXAMETHASONE [Concomitant]
     Route: 048
  6. DEXAMETHASONE [Concomitant]
     Indication: MULTIPLE MYELOMA
     Route: 048

REACTIONS (1)
  - MULTIPLE MYELOMA [None]
